FAERS Safety Report 22330661 (Version 3)
Quarter: 2023Q2

REPORT INFORMATION
  Report Type: Spontaneous
  Country: US (occurrence: US)
  Receive Date: 20230517
  Receipt Date: 20230619
  Transmission Date: 20230721
  Serious: Yes (Other)
  Sender: FDA-Public Use
  Company Number: US-BRISTOL-MYERS SQUIBB COMPANY-2023-066886

PATIENT
  Age: 71 Year
  Sex: Female

DRUGS (2)
  1. SPRYCEL [Suspect]
     Active Substance: DASATINIB
     Indication: Chronic myeloid leukaemia
     Dosage: ONCE DAILY.
     Route: 048
     Dates: start: 202301
  2. IMATINIB [Suspect]
     Active Substance: IMATINIB
     Indication: Product used for unknown indication

REACTIONS (12)
  - Renal injury [Unknown]
  - Supraventricular tachycardia [Unknown]
  - Arrhythmia [Recovering/Resolving]
  - Mucosal inflammation [Unknown]
  - Gastrointestinal haemorrhage [Unknown]
  - Anaemia [Unknown]
  - Hyperthyroidism [Unknown]
  - Cystitis interstitial [Unknown]
  - Ventricular tachycardia [Unknown]
  - Renal failure [Unknown]
  - Protein total decreased [Unknown]
  - Condition aggravated [Recovering/Resolving]
